FAERS Safety Report 5366840-X (Version None)
Quarter: 2007Q2

REPORT INFORMATION
  Report Type: 
  Country: None (occurrence: None)
  Receive Date: 20070622
  Receipt Date: 20061106
  Transmission Date: 20071010
  Serious: No
  Sender: FDA-Public Use
  Company Number: US-ASTRAZENECA-2006UW22022

PATIENT
  Age: 17 Year
  Sex: Male

DRUGS (1)
  1. RHINOCORT [Suspect]
     Indication: SEASONAL ALLERGY
     Route: 045
     Dates: start: 19990101

REACTIONS (1)
  - NASAL POLYPS [None]
